FAERS Safety Report 14477213 (Version 1)
Quarter: 2018Q1

REPORT INFORMATION
  Report Type: Report from Study
  Country: US (occurrence: US)
  Receive Date: 20180201
  Receipt Date: 20180201
  Transmission Date: 20180509
  Serious: No
  Sender: FDA-Public Use
  Company Number: US-EXELIXIS-CABO-17010940

PATIENT
  Sex: Female

DRUGS (17)
  1. GLIPIZIDE. [Concomitant]
     Active Substance: GLIPIZIDE
  2. GLUCOSE [Concomitant]
     Active Substance: DEXTROSE
  3. LISINOPRIL. [Concomitant]
     Active Substance: LISINOPRIL
  4. TRILIPIX [Concomitant]
     Active Substance: FENOFIBRIC ACID
  5. CITALOPRAM HYDROBROMIDE. [Concomitant]
     Active Substance: CITALOPRAM HYDROBROMIDE
  6. DOCUSATE SODIUM. [Concomitant]
     Active Substance: DOCUSATE SODIUM
  7. MULTIVITAMIN [Concomitant]
     Active Substance: VITAMINS
  8. ALBUTEROL SULFATE. [Concomitant]
     Active Substance: ALBUTEROL SULFATE
  9. TESSALON [Concomitant]
     Active Substance: BENZONATATE
  10. AMLODIPINE BESYLATE. [Concomitant]
     Active Substance: AMLODIPINE BESYLATE
  11. ASPIRIN. [Concomitant]
     Active Substance: ASPIRIN
  12. CABOMETYX [Suspect]
     Active Substance: CABOZANTINIB S-MALATE
     Indication: RENAL CANCER
     Dosage: 60 MG, QD
     Route: 048
     Dates: start: 20170830
  13. ASPIRIN. [Concomitant]
     Active Substance: ASPIRIN
  14. PARAFON FORTE DSC [Concomitant]
     Active Substance: CHLORZOXAZONE
  15. NEURONTIN [Concomitant]
     Active Substance: GABAPENTIN
  16. VITAMIN B6 [Concomitant]
     Active Substance: PYRIDOXINE HYDROCHLORIDE
  17. GABAPENTIN. [Concomitant]
     Active Substance: GABAPENTIN

REACTIONS (2)
  - Impaired healing [Unknown]
  - Blister [Unknown]
